FAERS Safety Report 23195173 (Version 6)
Quarter: 2025Q2

REPORT INFORMATION
  Report Type: Report from Study
  Country: US (occurrence: US)
  Receive Date: 20231117
  Receipt Date: 20250613
  Transmission Date: 20250717
  Serious: Yes (Hospitalization, Other)
  Sender: ROCHE
  Company Number: US-ROCHE-3451589

PATIENT
  Age: 68 Year
  Sex: Female
  Weight: 55.79 kg

DRUGS (22)
  1. RITUXAN [Suspect]
     Active Substance: RITUXIMAB
     Indication: Rheumatoid arthritis
     Route: 042
  2. RITUXAN [Suspect]
     Active Substance: RITUXIMAB
     Route: 042
     Dates: start: 20231204
  3. RITUXAN [Suspect]
     Active Substance: RITUXIMAB
     Route: 042
  4. VITAMIN D3 [Concomitant]
     Active Substance: CHOLECALCIFEROL
  5. CYANOCOBALAMIN [Concomitant]
     Active Substance: CYANOCOBALAMIN
  6. FOLVITE [Concomitant]
     Active Substance: FOLIC ACID
  7. COZAAR [Concomitant]
     Active Substance: LOSARTAN POTASSIUM
  8. METHOTREXATE [Concomitant]
     Active Substance: METHOTREXATE
  9. NIRMATRELVIR\RITONAVIR [Concomitant]
     Active Substance: NIRMATRELVIR\RITONAVIR
  10. MAXITROL [Concomitant]
     Active Substance: DEXAMETHASONE\NEOMYCIN SULFATE\POLYMYXIN B SULFATE
  11. FORTEO [Concomitant]
     Active Substance: TERIPARATIDE
  12. EVUSHELD [Concomitant]
     Active Substance: CILGAVIMAB\TIXAGEVIMAB
  13. LOSARTAN [Concomitant]
     Active Substance: LOSARTAN
  14. FOLIC ACID [Concomitant]
     Active Substance: FOLIC ACID
  15. ACRIVASTINE [Concomitant]
     Active Substance: ACRIVASTINE
  16. TYLENOL [Concomitant]
     Active Substance: ACETAMINOPHEN
  17. HEPARIN [Concomitant]
     Active Substance: HEPARIN SODIUM
  18. ALBUTEROL [Concomitant]
     Active Substance: ALBUTEROL
  19. ADRENALINA [EPINEPHRINE] [Concomitant]
  20. PEPCID [Concomitant]
     Active Substance: FAMOTIDINE
  21. MEDROL [Concomitant]
     Active Substance: METHYLPREDNISOLONE
  22. DEMEROL [Concomitant]
     Active Substance: MEPERIDINE HYDROCHLORIDE

REACTIONS (13)
  - Compression fracture [Recovered/Resolved]
  - Dupuytren^s contracture [Unknown]
  - Postoperative ileus [Unknown]
  - Malignant hypertensive heart disease [Unknown]
  - Spinal osteoarthritis [Unknown]
  - Bone density abnormal [Unknown]
  - Antinuclear antibody positive [Unknown]
  - Conjunctivitis bacterial [Unknown]
  - Balance disorder [Unknown]
  - Fall [Unknown]
  - Otorrhoea [Unknown]
  - Iron deficiency anaemia [Unknown]
  - Vitamin D deficiency [Unknown]
